FAERS Safety Report 7394946-2 (Version None)
Quarter: 2011Q2

REPORT INFORMATION
  Report Type: 
  Country: None (occurrence: None)
  Receive Date: 20110405
  Receipt Date: 20110330
  Transmission Date: 20111010
  Serious: Yes (Other)
  Sender: FDA-Public Use
  Company Number: US-PFIZER INC-2011071205

PATIENT
  Sex: Female

DRUGS (2)
  1. GEODON [Suspect]
     Dosage: 40 MG, 2X/DAY
     Dates: start: 20100701
  2. GEODON [Suspect]
     Dosage: 60 MG, 2X/DAY

REACTIONS (2)
  - MUSCULOSKELETAL STIFFNESS [None]
  - TONGUE DISORDER [None]
